FAERS Safety Report 7902239-7 (Version None)
Quarter: 2011Q4

REPORT INFORMATION
  Report Type: 
  Country: None (occurrence: None)
  Receive Date: 20111108
  Receipt Date: 20111103
  Transmission Date: 20120403
  Serious: Yes (Life-Threatening)
  Sender: FDA-Public Use
  Company Number: RO-ELI_LILLY_AND_COMPANY-RO201111001901

PATIENT
  Sex: Female
  Weight: 58.957 kg

DRUGS (2)
  1. HUMALOG MIX 50/50 [Suspect]
     Dosage: 38 IU, BID
     Dates: start: 20100520
  2. HUMALOG MIX 50/50 [Suspect]
     Dosage: 12 IU, QD

REACTIONS (1)
  - BLOOD GLUCOSE INCREASED [None]
